FAERS Safety Report 6193590-2 (Version None)
Quarter: 2009Q2

REPORT INFORMATION
  Report Type: 
  Country: None (occurrence: None)
  Receive Date: 20090518
  Receipt Date: 20090513
  Transmission Date: 20091009
  Serious: Yes (Death, Hospitalization)
  Sender: FDA-Public Use
  Company Number: AU-AVENTIS-200914978GDDC

PATIENT
  Age: 70 Year
  Sex: Female

DRUGS (3)
  1. TAXOTERE [Suspect]
     Route: 042
     Dates: start: 20080101, end: 20080101
  2. ADRIAMYCIN PFS [Suspect]
     Dosage: DOSE: UNK
     Dates: start: 20080101, end: 20080101
  3. CYCLOPHOSPHAMIDE [Suspect]
     Dosage: DOSE: UNK
     Dates: start: 20080101, end: 20080101

REACTIONS (3)
  - CAECITIS [None]
  - DEATH [None]
  - INTESTINAL OBSTRUCTION [None]
